FAERS Safety Report 13890308 (Version 1)
Quarter: 2017Q3

REPORT INFORMATION
  Report Type: Spontaneous
  Country: US (occurrence: US)
  Receive Date: 20170822
  Receipt Date: 20170822
  Transmission Date: 20171127
  Serious: No
  Sender: FDA-Public Use
  Company Number: US-BAYER-2017-151189

PATIENT
  Age: 77 Year
  Sex: Female
  Weight: 48 kg

DRUGS (7)
  1. MIRALAX [Suspect]
     Active Substance: POLYETHYLENE GLYCOL 3350
     Dosage: 1 DF, QD
     Route: 048
     Dates: start: 2011
  2. MIRALAX [Suspect]
     Active Substance: POLYETHYLENE GLYCOL 3350
     Dosage: 1 DF, QD
     Route: 048
     Dates: start: 2011
  3. SYNTHROID [Concomitant]
     Active Substance: LEVOTHYROXINE SODIUM
  4. AZOR [ALPRAZOLAM] [Concomitant]
  5. TOPROL XL [Concomitant]
     Active Substance: METOPROLOL SUCCINATE
  6. VITAMIN D [Concomitant]
     Active Substance: CHOLECALCIFEROL
  7. MIRALAX [Suspect]
     Active Substance: POLYETHYLENE GLYCOL 3350
     Dosage: 1 DF, QD
     Route: 048
     Dates: start: 2011

REACTIONS (6)
  - Constipation [Not Recovered/Not Resolved]
  - Incorrect drug administration duration [Unknown]
  - Intentional product misuse [Unknown]
  - Off label use [Unknown]
  - Wrong technique in product usage process [Unknown]
  - Drug ineffective [Not Recovered/Not Resolved]

NARRATIVE: CASE EVENT DATE: 2011
